FAERS Safety Report 15652005 (Version 2)
Quarter: 2018Q4

REPORT INFORMATION
  Report Type: Spontaneous
  Country: CA (occurrence: CA)
  Receive Date: 20181123
  Receipt Date: 20181129
  Transmission Date: 20190205
  Serious: Yes (Other)
  Sender: FDA-Public Use
  Company Number: CA-PFIZER INC-2018454484

PATIENT
  Age: 61 Year
  Sex: Female

DRUGS (2)
  1. VITAMIN D [ERGOCALCIFEROL] [Concomitant]
     Dosage: UNK
  2. XELJANZ [Suspect]
     Active Substance: TOFACITINIB CITRATE
     Indication: COLITIS ULCERATIVE
     Dosage: 10 MG, 2X/DAY
     Route: 048
     Dates: start: 20181026, end: 201811

REACTIONS (8)
  - Urine output decreased [Recovering/Resolving]
  - Joint effusion [Not Recovered/Not Resolved]
  - Pollakiuria [Recovering/Resolving]
  - Oedema [Unknown]
  - Haematochezia [Recovering/Resolving]
  - Dyspnoea [Recovering/Resolving]
  - Back pain [Recovering/Resolving]
  - Peripheral swelling [Not Recovered/Not Resolved]

NARRATIVE: CASE EVENT DATE: 20181108
